FAERS Safety Report 10579485 (Version 3)
Quarter: 2014Q4

REPORT INFORMATION
  Report Type: Spontaneous
  Country: US (occurrence: US)
  Receive Date: 20141112
  Receipt Date: 20141222
  Transmission Date: 20150529
  Serious: Yes (Hospitalization, Other)
  Sender: FDA-Public Use
  Company Number: US-BAYER-2014-165435

PATIENT
  Age: 36 Year
  Sex: Female
  Weight: 68.27 kg

DRUGS (4)
  1. LISINOPRIL. [Concomitant]
     Active Substance: LISINOPRIL
     Indication: HYPERTENSION
     Dosage: 10 MG, UNK
     Route: 048
     Dates: start: 2002
  2. MIRENA [Suspect]
     Active Substance: LEVONORGESTREL
     Dosage: 20 MCG/DL, CONT
     Route: 015
     Dates: start: 20090312, end: 20130707
  3. METHYLDOPA. [Concomitant]
     Active Substance: METHYLDOPA
     Indication: BLOOD PRESSURE INCREASED
  4. ZOCOR [Concomitant]
     Active Substance: SIMVASTATIN
     Indication: BLOOD CHOLESTEROL INCREASED
     Dosage: UNK
     Route: 048
     Dates: start: 2002

REACTIONS (12)
  - Subarachnoid haemorrhage [None]
  - Haemorrhage in pregnancy [None]
  - Device difficult to use [None]
  - Uterine perforation [None]
  - Pregnancy with contraceptive device [None]
  - Aneurysm ruptured [None]
  - Injury [None]
  - Pain [None]
  - Premature separation of placenta [None]
  - Drug ineffective [None]
  - Placenta praevia [None]
  - Peritoneal fibrosis [None]

NARRATIVE: CASE EVENT DATE: 2013
